FAERS Safety Report 7107989-0 (Version None)
Quarter: 2010Q4

REPORT INFORMATION
  Report Type: 
  Country: None (occurrence: None)
  Receive Date: 20101117
  Receipt Date: 20101105
  Transmission Date: 20110411
  Serious: Yes (Hospitalization, Other)
  Sender: FDA-Public Use
  Company Number: PL-PFIZER INC-PL-WYE-H17748610

PATIENT
  Age: 57 Year
  Sex: Male
  Weight: 81 kg

DRUGS (2)
  1. TEMSIROLIMUS [Suspect]
     Indication: RENAL CELL CARCINOMA
     Dosage: 25 MG 1 TIMES PER 1 WK
     Route: 042
     Dates: start: 20100729, end: 20100916
  2. *BEVACIZUMAB [Suspect]
     Indication: RENAL CELL CARCINOMA
     Dosage: 10 MG/KG 1 TIMES PER 2 WK
     Route: 042
     Dates: start: 20100729, end: 20100916

REACTIONS (2)
  - CHOLECYSTITIS [None]
  - HAEMORRHOIDS [None]
